FAERS Safety Report 9424141 (Version 2)
Quarter: 2013Q3

REPORT INFORMATION
  Report Type: Spontaneous
  Country: US (occurrence: US)
  Receive Date: 20130729
  Receipt Date: 20130926
  Transmission Date: 20140515
  Serious: No
  Sender: FDA-Public Use
  Company Number: US-009507513-1307USA014558

PATIENT
  Sex: Female

DRUGS (2)
  1. PEG-INTRON [Suspect]
     Indication: HEPATITIS C
     Dosage: UNK
     Dates: start: 20130709, end: 2013
  2. REBETOL [Suspect]
     Indication: HEPATITIS C
     Dosage: VIAL
     Route: 048
     Dates: start: 20130708, end: 2013

REACTIONS (7)
  - Fall [Unknown]
  - Fatigue [Unknown]
  - Dizziness [Unknown]
  - Drug dose omission [Unknown]
  - Rash generalised [Unknown]
  - Asthenia [Unknown]
  - Arthralgia [Unknown]
